FAERS Safety Report 16096250 (Version 2)
Quarter: 2019Q2

REPORT INFORMATION
  Report Type: Report from Study
  Country: US (occurrence: US)
  Receive Date: 20190320
  Receipt Date: 20190415
  Transmission Date: 20190711
  Serious: Yes (Hospitalization, Other)
  Sender: FDA-Public Use
  Company Number: US-ACTELION-A-NJ2019-187903

PATIENT
  Age: 2 Year
  Sex: Female
  Weight: 11.34 kg

DRUGS (4)
  1. TRACLEER [Suspect]
     Active Substance: BOSENTAN
     Indication: PULMONARY HYPERTENSION
     Dosage: 31.25 MG, BID
     Route: 048
  2. TADALAFIL. [Concomitant]
     Active Substance: TADALAFIL
     Dosage: 3 ML
     Route: 048
  3. LISINOPRIL. [Concomitant]
     Active Substance: LISINOPRIL
     Dosage: 10.5 MG, Q12HRS
  4. KEPPRA [Concomitant]
     Active Substance: LEVETIRACETAM
     Dosage: 100 MG, BID

REACTIONS (2)
  - Tracheostomy infection [Recovered/Resolved]
  - Tracheostomy [Unknown]

NARRATIVE: CASE EVENT DATE: 20181026
